FAERS Safety Report 15278582 (Version 2)
Quarter: 2018Q4

REPORT INFORMATION
  Report Type: Spontaneous
  Country: FR (occurrence: FR)
  Receive Date: 20180815
  Receipt Date: 20181107
  Transmission Date: 20190204
  Serious: Yes (Hospitalization)
  Sender: FDA-Public Use
  Company Number: FR-TEVA-2018-FR-940826

PATIENT
  Age: 32 Year
  Sex: Female

DRUGS (8)
  1. BACTRIM [Suspect]
     Active Substance: SULFAMETHOXAZOLE\TRIMETHOPRIM
     Indication: PNEUMOCYSTIS JIROVECII PNEUMONIA
     Dosage: 6400 MILLIGRAM DAILY;
     Route: 048
     Dates: start: 20180618, end: 20180625
  2. LYSODREN 500 MG, COMPRIM? [Concomitant]
     Indication: CUSHING^S SYNDROME
     Route: 048
     Dates: start: 20180621, end: 20180625
  3. ROVAMYCINE [Suspect]
     Active Substance: SPIRAMYCIN
     Indication: PNEUMOCYSTIS JIROVECII PNEUMONIA
     Dosage: 1.5 KU DAILY;
     Route: 041
     Dates: start: 20180618, end: 20180625
  4. METOPIRONE 250 MG, CAPSULE [Concomitant]
     Indication: CUSHING^S SYNDROME
     Dates: start: 20180619, end: 20180703
  5. NIVESTIM 48 MU/0,5 ML, SOLUTION INJECTABLE/POUR PERFUSION [Concomitant]
     Dosage: 48 KU DAILY; 48 MU/0.5 ML, INJECTABLE/INFUSION SOLUTION
     Route: 058
     Dates: start: 20180625, end: 20180628
  6. EMEND [Suspect]
     Active Substance: APREPITANT
     Indication: PROPHYLAXIS OF NAUSEA AND VOMITING
     Route: 048
     Dates: start: 20180621, end: 20180627
  7. CISPLATIN. [Suspect]
     Active Substance: CISPLATIN
     Indication: ADRENAL GLAND CANCER
     Route: 041
     Dates: start: 20180621, end: 20180623
  8. PIPERACILLINE TAZOBACTAM MYLAN [Suspect]
     Active Substance: PIPERACILLIN SODIUM\TAZOBACTAM SODIUM
     Indication: BACTERIAL INFECTION
     Dosage: 12 GRAM DAILY;
     Route: 041
     Dates: start: 20180619, end: 20180625

REACTIONS (1)
  - Hepatocellular injury [Recovered/Resolved]

NARRATIVE: CASE EVENT DATE: 20180623
